FAERS Safety Report 5304229-X (Version None)
Quarter: 2007Q2

REPORT INFORMATION
  Report Type: 
  Country: None (occurrence: None)
  Receive Date: 20070423
  Receipt Date: 20070412
  Transmission Date: 20071010
  Serious: Yes (Other)
  Sender: FDA-Public Use
  Company Number: PHBS2007JP05548

PATIENT
  Age: 21 Year
  Sex: Female

DRUGS (6)
  1. PREDONINE [Concomitant]
     Indication: HISTIOCYTOSIS HAEMATOPHAGIC
     Dosage: UNK, UNK
     Route: 042
     Dates: start: 20070109
  2. ANTIBIOTICS [Concomitant]
  3. NEORAL [Suspect]
     Indication: HISTIOCYTOSIS HAEMATOPHAGIC
     Dosage: UNK, UNK
     Route: 048
     Dates: start: 20070109, end: 20070124
  4. CARBENIN [Suspect]
     Route: 042
     Dates: start: 20070109, end: 20070115
  5. MINOCYCLINE HCL [Suspect]
     Route: 042
     Dates: start: 20070115, end: 20070120
  6. FIRSTCIN [Suspect]
     Route: 042
     Dates: start: 20070115, end: 20070121

REACTIONS (3)
  - PANCYTOPENIA [None]
  - PLATELET COUNT DECREASED [None]
  - WHITE BLOOD CELL COUNT DECREASED [None]
